FAERS Safety Report 16563353 (Version 1)
Quarter: 2019Q3

REPORT INFORMATION
  Report Type: Spontaneous
  Country: US (occurrence: US)
  Receive Date: 20190711
  Receipt Date: 20190711
  Transmission Date: 20191004
  Serious: No
  Sender: FDA-Public Use
  Company Number: US-TEVA-2019-US-1074760

PATIENT
  Age: 53 Year
  Sex: Male
  Weight: 84 kg

DRUGS (10)
  1. HORIZANT [Concomitant]
     Active Substance: GABAPENTIN ENACARBIL
     Indication: MULTIPLE SCLEROSIS
  2. DRONABINOL. [Concomitant]
     Active Substance: DRONABINOL
     Indication: MUSCLE SPASTICITY
  3. DRONABINOL. [Concomitant]
     Active Substance: DRONABINOL
     Indication: NEURALGIA
  4. CELEXA [Concomitant]
     Active Substance: CITALOPRAM HYDROBROMIDE
     Indication: ANXIETY
  5. CELEXA [Concomitant]
     Active Substance: CITALOPRAM HYDROBROMIDE
     Indication: DEPRESSED MOOD
  6. CLONAZEPAM. [Concomitant]
     Active Substance: CLONAZEPAM
     Indication: SLEEP DISORDER
  7. DRONABINOL. [Concomitant]
     Active Substance: DRONABINOL
     Indication: MULTIPLE SCLEROSIS
  8. CLONAZEPAM. [Concomitant]
     Active Substance: CLONAZEPAM
     Indication: MUSCLE SPASTICITY
  9. VITAMIN D [Concomitant]
     Active Substance: VITAMIN D NOS
     Indication: MULTIPLE SCLEROSIS
  10. COPAXONE [Suspect]
     Active Substance: GLATIRAMER ACETATE
     Indication: MULTIPLE SCLEROSIS
     Dosage: 40 MG
     Route: 058
     Dates: start: 199606

REACTIONS (9)
  - Dyspnoea [Recovered/Resolved]
  - Dizziness [Recovered/Resolved]
  - Fatigue [Recovered/Resolved]
  - Chest discomfort [Recovered/Resolved]
  - Nausea [Recovered/Resolved]
  - Muscle spasms [Recovered/Resolved]
  - Chest pain [Recovered/Resolved]
  - Flushing [Recovered/Resolved]
  - Arthralgia [Recovered/Resolved]

NARRATIVE: CASE EVENT DATE: 20190703
